FAERS Safety Report 25287144 (Version 1)
Quarter: 2025Q2

REPORT INFORMATION
  Report Type: Spontaneous
  Country: US (occurrence: US)
  Receive Date: 20250509
  Receipt Date: 20250509
  Transmission Date: 20250717
  Serious: Yes (Hospitalization)
  Sender: MYLAN
  Company Number: US-MYLANLABS-2025M1039122

PATIENT
  Age: 70 Year
  Sex: Female

DRUGS (28)
  1. OCTREOTIDE [Suspect]
     Active Substance: OCTREOTIDE
     Indication: Chylothorax
     Dosage: 50 MILLIGRAM, TID
  2. OCTREOTIDE [Suspect]
     Active Substance: OCTREOTIDE
     Dosage: 50 MILLIGRAM, TID
     Route: 065
  3. OCTREOTIDE [Suspect]
     Active Substance: OCTREOTIDE
     Dosage: 50 MILLIGRAM, TID
     Route: 065
  4. OCTREOTIDE [Suspect]
     Active Substance: OCTREOTIDE
     Dosage: 50 MILLIGRAM, TID
  5. DOXYCYCLINE [Suspect]
     Active Substance: DOXYCYCLINE
     Indication: Chylothorax
  6. DOXYCYCLINE [Suspect]
     Active Substance: DOXYCYCLINE
     Route: 065
  7. DOXYCYCLINE [Suspect]
     Active Substance: DOXYCYCLINE
     Route: 065
  8. DOXYCYCLINE [Suspect]
     Active Substance: DOXYCYCLINE
  9. TALC [Suspect]
     Active Substance: TALC
     Indication: Chylothorax
  10. TALC [Suspect]
     Active Substance: TALC
  11. TALC [Suspect]
     Active Substance: TALC
     Route: 065
  12. TALC [Suspect]
     Active Substance: TALC
     Route: 065
  13. TALC [Suspect]
     Active Substance: TALC
  14. TALC [Suspect]
     Active Substance: TALC
  15. TALC [Suspect]
     Active Substance: TALC
     Route: 065
  16. TALC [Suspect]
     Active Substance: TALC
     Route: 065
  17. TACROLIMUS [Concomitant]
     Active Substance: TACROLIMUS
     Indication: Immunosuppressant drug therapy
  18. TACROLIMUS [Concomitant]
     Active Substance: TACROLIMUS
     Route: 065
  19. TACROLIMUS [Concomitant]
     Active Substance: TACROLIMUS
     Route: 065
  20. TACROLIMUS [Concomitant]
     Active Substance: TACROLIMUS
  21. MYCOPHENOLATE MOFETIL [Concomitant]
     Active Substance: MYCOPHENOLATE MOFETIL
     Indication: Immunosuppressant drug therapy
  22. MYCOPHENOLATE MOFETIL [Concomitant]
     Active Substance: MYCOPHENOLATE MOFETIL
     Route: 065
  23. MYCOPHENOLATE MOFETIL [Concomitant]
     Active Substance: MYCOPHENOLATE MOFETIL
     Route: 065
  24. MYCOPHENOLATE MOFETIL [Concomitant]
     Active Substance: MYCOPHENOLATE MOFETIL
  25. PREDNISONE [Concomitant]
     Active Substance: PREDNISONE
     Indication: Immunosuppressant drug therapy
  26. PREDNISONE [Concomitant]
     Active Substance: PREDNISONE
     Route: 065
  27. PREDNISONE [Concomitant]
     Active Substance: PREDNISONE
     Route: 065
  28. PREDNISONE [Concomitant]
     Active Substance: PREDNISONE

REACTIONS (2)
  - Drug ineffective for unapproved indication [Unknown]
  - Off label use [Unknown]
